FAERS Safety Report 6691408-2 (Version None)
Quarter: 2010Q2

REPORT INFORMATION
  Report Type: 
  Country: None (occurrence: None)
  Receive Date: 20100416
  Receipt Date: 20100401
  Transmission Date: 20101027
  Serious: Yes (Hospitalization)
  Sender: FDA-Public Use
  Company Number: 009324

PATIENT
  Sex: Female
  Weight: 75 kg

DRUGS (6)
  1. CIMZIA [Suspect]
     Indication: RHEUMATOID ARTHRITIS
     Dosage: SUBCUTANEOUS
     Route: 058
     Dates: start: 20091204, end: 20100316
  2. LEFLUNOMIDE [Concomitant]
  3. PREDNISONE TAB [Concomitant]
  4. L-DOPA [Concomitant]
  5. AMANTADINE HCL [Concomitant]
  6. PRAMIPEXOLE DIHYDROCHLORIDE [Concomitant]

REACTIONS (4)
  - CELLULITIS [None]
  - ERYSIPELAS [None]
  - GENERAL PHYSICAL HEALTH DETERIORATION [None]
  - PSORIASIS [None]
